FAERS Safety Report 20299352 (Version 2)
Quarter: 2022Q4

REPORT INFORMATION
  Report Type: Spontaneous
  Country: FR (occurrence: FR)
  Receive Date: 20220105
  Receipt Date: 20221018
  Transmission Date: 20230113
  Serious: Yes (Hospitalization, Other)
  Sender: FDA-Public Use
  Company Number: None

PATIENT
  Age: 28 Year
  Sex: Female
  Weight: 47 kg

DRUGS (3)
  1. TRAMADOL [Suspect]
     Active Substance: TRAMADOL
     Indication: Product used for unknown indication
     Dosage: TRAMADOL100MG2/DAY+1TABLETOF IZALGI(25 MG)
     Route: 048
     Dates: start: 2016
  2. TRAMADOL [Suspect]
     Active Substance: TRAMADOL
     Dosage: 225 MILLIGRAM, QD (225 MILLIGRAM, 1/DAY)
     Route: 065
     Dates: start: 2016
  3. ACETAMINOPHEN\OPIUM [Suspect]
     Active Substance: ACETAMINOPHEN\OPIUM
     Indication: Product used for unknown indication
     Dosage: 25 MILLIGRAM
     Route: 065

REACTIONS (3)
  - Drug detoxification [Recovering/Resolving]
  - Intentional product misuse [Recovering/Resolving]
  - Drug dependence [Recovering/Resolving]

NARRATIVE: CASE EVENT DATE: 20160101
